FAERS Safety Report 11937499 (Version 1)
Quarter: 2016Q1

REPORT INFORMATION
  Report Type: Spontaneous
  Country: GB (occurrence: GB)
  Receive Date: 20160121
  Receipt Date: 20160121
  Transmission Date: 20160526
  Serious: Yes (Hospitalization)
  Sender: FDA-Public Use
  Company Number: GB-JNJFOC-20160105748

PATIENT
  Age: 24 Month
  Sex: Female
  Weight: 13 kg

DRUGS (2)
  1. CALPOL [Suspect]
     Active Substance: ACETAMINOPHEN
     Route: 048
  2. CALPOL [Suspect]
     Active Substance: ACETAMINOPHEN
     Indication: EAR PAIN
     Dosage: 3 DOSES 120/5ML GIVEN DURING A DAY. EMPTY 100 ML BOTTLE FOUND IN THE MORNING.
     Route: 048
     Dates: start: 20151229, end: 20151230

REACTIONS (2)
  - Accidental overdose [Recovered/Resolved]
  - Vomiting [Recovered/Resolved]

NARRATIVE: CASE EVENT DATE: 20151230
